FAERS Safety Report 7799541-9 (Version None)
Quarter: 2011Q4

REPORT INFORMATION
  Report Type: 
  Country: None (occurrence: None)
  Receive Date: 20111006
  Receipt Date: 20111006
  Transmission Date: 20120403
  Serious: Yes (Life-Threatening)
  Sender: FDA-Public Use
  Company Number: None

PATIENT
  Sex: Male
  Weight: 85.728 kg

DRUGS (2)
  1. SIMPONI [Suspect]
     Indication: RHEUMATOID ARTHRITIS
     Dosage: 50MG SC
     Route: 058
     Dates: start: 20091201, end: 20110801
  2. METHOTREXATE [Concomitant]
     Dosage: 20MG
     Route: 048
     Dates: start: 20090301, end: 20110801

REACTIONS (1)
  - DIFFUSE LARGE B-CELL LYMPHOMA STAGE II [None]
